FAERS Safety Report 20343138 (Version 1)
Quarter: 2022Q1

REPORT INFORMATION
  Report Type: Spontaneous
  Country: IT (occurrence: IT)
  Receive Date: 20220117
  Receipt Date: 20220117
  Transmission Date: 20220423
  Serious: Yes (Death, Life-Threatening, Other)
  Sender: FDA-Public Use
  Company Number: IT-NAPPMUNDI-GBR-2022-0094200

PATIENT
  Age: 24 Year
  Sex: Male

DRUGS (5)
  1. MORPHINE SULFATE [Interacting]
     Active Substance: MORPHINE SULFATE
     Indication: Product used for unknown indication
     Dosage: 100MG AT 1.5ML/ H WITH CONTINUOUS INFUSION
     Route: 042
  2. MORPHINE SULFATE [Interacting]
     Active Substance: MORPHINE SULFATE
     Dosage: 3MG/ 3ML INFUSION IN PHYSIOLOGICAL SOLUTION AT OCCURENCE
     Route: 042
  3. MIDAZOLAM [Interacting]
     Active Substance: MIDAZOLAM
     Indication: Product used for unknown indication
     Dosage: 60 MG, SINGLE (6 AMPULES OF 5MG AND 2 OF 15MG BY MULTIPLE INJECTIONS IN SHORT TIME SEQUENCE)
     Route: 042
  4. OXYGEN [Concomitant]
     Active Substance: OXYGEN
     Dosage: 3 L/ MIN
  5. ACETAMINOPHEN [Concomitant]
     Active Substance: ACETAMINOPHEN
     Dosage: 1 G, AT OCCURENCE
     Route: 042

REACTIONS (4)
  - Brain oedema [Fatal]
  - Cerebral congestion [Fatal]
  - Cardiopulmonary failure [Fatal]
  - Drug interaction [Fatal]
